FAERS Safety Report 4462439-8 (Version None)
Quarter: 2004Q3

REPORT INFORMATION
  Report Type: 
  Country: None (occurrence: None)
  Receive Date: 20040924
  Receipt Date: 20040911
  Transmission Date: 20050211
  Serious: Yes (Other)
  Sender: FDA-Public Use
  Company Number: 2004057886

PATIENT
  Age: 52 Year
  Sex: Female
  Weight: 90.7194 kg

DRUGS (10)
  1. LIPITOR [Suspect]
     Indication: BLOOD CHOLESTEROL INCREASED
     Dosage: 10 MG (10 MG, 1 IN 1 D), ORAL
     Route: 048
     Dates: start: 20010320, end: 20040802
  2. LIPITOR [Suspect]
     Indication: HYPERLIPIDAEMIA
     Dosage: 10 MG (10 MG, 1 IN 1 D), ORAL
     Route: 048
     Dates: start: 20010320, end: 20040802
  3. CLOPIDOGREL BISULFATE [Concomitant]
  4. SALBUTAMOL (SALBUTAMOL) [Concomitant]
  5. CROMOGLICATE SODIUM (CROMOGLICATE SODIUM) [Concomitant]
  6. HYDROCHLOROTHIAZIDE [Concomitant]
  7. METOPROLOL SUCCINATE [Concomitant]
  8. ASPIRIN [Concomitant]
  9. ENALAPRIL MALEATE [Concomitant]
  10. OXYBUTYNIN CHLORIDE [Concomitant]

REACTIONS (16)
  - ACNE [None]
  - ARTHRALGIA [None]
  - BACK PAIN [None]
  - BLADDER SUSPENSION [None]
  - BLOOD CREATINE PHOSPHOKINASE INCREASED [None]
  - CONTUSION [None]
  - CORONARY ARTERY OCCLUSION [None]
  - DECREASED ACTIVITY [None]
  - DIAPHRAGMALGIA [None]
  - HYSTERECTOMY [None]
  - MUSCLE SPASMS [None]
  - MYALGIA [None]
  - MYOPATHY [None]
  - POLLAKIURIA [None]
  - POST PROCEDURAL COMPLICATION [None]
  - SPINAL OSTEOARTHRITIS [None]
